FAERS Safety Report 20736927 (Version 2)
Quarter: 2022Q2

REPORT INFORMATION
  Report Type: Spontaneous
  Country: FR (occurrence: FR)
  Receive Date: 20220421
  Receipt Date: 20220504
  Transmission Date: 20220721
  Serious: Yes (Other)
  Sender: FDA-Public Use
  Company Number: None

PATIENT
  Age: 60 Year
  Sex: Male
  Weight: 65 kg

DRUGS (23)
  1. PROPOFOL [Suspect]
     Active Substance: PROPOFOL
     Indication: General anaesthesia
     Dosage: 11 MICROGRAM
     Route: 041
     Dates: start: 20220208, end: 20220208
  2. ATROPINE [Suspect]
     Active Substance: ATROPINE
     Indication: General anaesthesia
     Dosage: 1 MILLIGRAM
     Route: 041
     Dates: start: 20220208, end: 20220208
  3. MIDAZOLAM [Suspect]
     Active Substance: MIDAZOLAM
     Indication: General anaesthesia
     Dosage: 5 MILLIGRAM
     Route: 041
     Dates: start: 20220208, end: 20220208
  4. CEFUROXIME [Suspect]
     Active Substance: CEFUROXIME
     Indication: General anaesthesia
     Dosage: 3 GRAM
     Route: 041
     Dates: start: 20220208, end: 20220208
  5. SUFENTANIL [Suspect]
     Active Substance: SUFENTANIL
     Indication: General anaesthesia
     Dosage: 1.34 DOSAGE FORM (1.34 MG/ML)
     Route: 041
     Dates: start: 20220208, end: 20220208
  6. TRANEXAMIC ACID [Suspect]
     Active Substance: TRANEXAMIC ACID
     Indication: General anaesthesia
     Dosage: 0.9 GRAM
     Route: 041
     Dates: start: 20220208, end: 20220208
  7. TRANEXAMIC ACID [Suspect]
     Active Substance: TRANEXAMIC ACID
     Indication: Anticoagulation drug level
  8. ATRACURIUM [Suspect]
     Active Substance: ATRACURIUM
     Indication: General anaesthesia
     Dosage: 40 MILLIGRAM
     Route: 041
     Dates: start: 20220208, end: 20220208
  9. NOREPINEPHRINE [Suspect]
     Active Substance: NOREPINEPHRINE
     Indication: General anaesthesia
     Dosage: 436.67 MICROGRAM
     Route: 041
     Dates: start: 20220208, end: 20220208
  10. NOREPINEPHRINE [Suspect]
     Active Substance: NOREPINEPHRINE
     Dosage: 436 MICROGRAM, QD
     Route: 041
     Dates: start: 20220208, end: 20220208
  11. ETOMIDATE [Suspect]
     Active Substance: ETOMIDATE
     Indication: General anaesthesia
     Dosage: 10 MILLIGRAM
     Route: 041
     Dates: start: 20220208, end: 20220208
  12. PROTAMINE [Suspect]
     Active Substance: PROTAMINE
     Indication: General anaesthesia
     Dosage: 25000 INTERNATIONAL UNIT
     Route: 041
     Dates: start: 20220208, end: 20220208
  13. PROTAMINE [Suspect]
     Active Substance: PROTAMINE
     Indication: Anticoagulation drug level
  14. HEPARIN SODIUM [Suspect]
     Active Substance: HEPARIN SODIUM
     Indication: General anaesthesia
     Dosage: 20000 INTERNATIONAL UNIT
     Route: 041
     Dates: start: 20220208, end: 20220208
  15. HEPARIN SODIUM [Suspect]
     Active Substance: HEPARIN SODIUM
     Indication: Anticoagulation drug level
  16. AMLODIPINE BESYLATE [Concomitant]
     Active Substance: AMLODIPINE BESYLATE
     Dosage: 10 MILLIGRAM, QD
  17. PRADAXA [Concomitant]
     Active Substance: DABIGATRAN ETEXILATE MESYLATE
     Dosage: 110 MILLIGRAM, BID, MORNING AND EVENING
  18. BISOPROLOL [Concomitant]
     Active Substance: BISOPROLOL
     Dosage: 5 MILLIGRAM, QD, MORNING
  19. ATORVASTATIN [Concomitant]
     Active Substance: ATORVASTATIN
     Dosage: 40 MILLIGRAM
  20. PANTOPRAZOLE [Concomitant]
     Active Substance: PANTOPRAZOLE
     Dosage: 20 MILLIGRAM, QD EVENING
  21. RAMIPRIL [Concomitant]
     Active Substance: RAMIPRIL
     Dosage: 10 MILLIGRAM, QD, MORNING
  22. NITROGLYCERIN [Concomitant]
     Active Substance: NITROGLYCERIN
     Dosage: UNK
  23. NITROGLYCERIN [Concomitant]
     Active Substance: NITROGLYCERIN
     Dosage: 10 MILLIGRAM
     Route: 065

REACTIONS (2)
  - Cholestasis [Recovering/Resolving]
  - Transaminases increased [Recovering/Resolving]

NARRATIVE: CASE EVENT DATE: 20220208
